FAERS Safety Report 12962633 (Version 1)
Quarter: 2016Q4

REPORT INFORMATION
  Report Type: Report from Study
  Country: None (occurrence: IT)
  Receive Date: 20161121
  Receipt Date: 20161121
  Transmission Date: 20170207
  Serious: Yes (Hospitalization)
  Sender: FDA-Public Use
  Company Number: IT-ABBVIE-16P-083-1788721-00

PATIENT
  Age: 60 Year
  Sex: Male

DRUGS (1)
  1. DUODOPA [Suspect]
     Active Substance: CARBIDOPA\LEVODOPA
     Indication: PARKINSON^S DISEASE
     Dosage: MD 8(+3), CR 4.7, ED 1.5
     Route: 050
     Dates: start: 20151106, end: 20161113

REACTIONS (1)
  - Polyp [Unknown]

NARRATIVE: CASE EVENT DATE: 201611
